FAERS Safety Report 13384239 (Version 1)
Quarter: 2017Q1

REPORT INFORMATION
  Report Type: Spontaneous
  Country: CN (occurrence: CN)
  Receive Date: 20170329
  Receipt Date: 20170329
  Transmission Date: 20170429
  Serious: Yes (Death, Other)
  Sender: FDA-Public Use
  Company Number: PHHY2017CN047008

PATIENT
  Age: 75 Year
  Sex: Male

DRUGS (5)
  1. LAPATINIB [Suspect]
     Active Substance: LAPATINIB
     Indication: LUNG ADENOCARCINOMA
     Dosage: 250 MG, QD
     Route: 048
     Dates: start: 201402
  2. PEMETREXED [Suspect]
     Active Substance: PEMETREXED
     Indication: LUNG ADENOCARCINOMA
     Dosage: 500 MG/M2, UNK
     Route: 065
     Dates: start: 20131228
  3. CISPLATIN. [Suspect]
     Active Substance: CISPLATIN
     Indication: LUNG ADENOCARCINOMA
     Dosage: 75 MG/M2, UNK
     Route: 065
     Dates: start: 20131228
  4. CISPLATIN. [Suspect]
     Active Substance: CISPLATIN
     Dosage: 75 MG/M2, D1, D2
     Route: 065
  5. GEMCITABINE [Suspect]
     Active Substance: GEMCITABINE\GEMCITABINE HYDROCHLORIDE
     Indication: LUNG ADENOCARCINOMA
     Dosage: 1250 MG/M2, UNK
     Route: 065

REACTIONS (6)
  - Lung adenocarcinoma [Fatal]
  - Malignant neoplasm progression [Fatal]
  - Neoplasm progression [Unknown]
  - Product use issue [Unknown]
  - Rash [Unknown]
  - Bone marrow failure [Recovered/Resolved]

NARRATIVE: CASE EVENT DATE: 201503
